FAERS Safety Report 10662806 (Version 1)
Quarter: 2014Q4

REPORT INFORMATION
  Report Type: Spontaneous
  Country: US (occurrence: US)
  Receive Date: 20141218
  Receipt Date: 20141218
  Transmission Date: 20150529
  Serious: Yes (Hospitalization, Other)
  Sender: FDA-Public Use
  Company Number: US-ACTAVIS-2014-27027

PATIENT
  Age: 38 Year
  Sex: Female

DRUGS (1)
  1. OXYCODONE-ACETAMINOPHEN (AELLC) [Suspect]
     Active Substance: ACETAMINOPHEN\OXYCODONE HYDROCHLORIDE
     Indication: DRUG ABUSE
     Dosage: 50 DF, TOTAL (30 TABLETS FIRST DAY, 20 TABLETS SECOND DAY; TOTAL ACETAMINOPHEN DOSE 16.25G)
     Route: 045

REACTIONS (7)
  - Drug level increased [Recovered/Resolved]
  - Drug abuse [Unknown]
  - Dysphagia [Recovered/Resolved]
  - Sinusitis [Recovered/Resolved]
  - Incorrect route of drug administration [Unknown]
  - Pharyngitis [Recovered/Resolved]
  - Nausea [Recovered/Resolved]
